FAERS Safety Report 12675989 (Version 1)
Quarter: 2016Q3

REPORT INFORMATION
  Report Type: Spontaneous
  Country: PH (occurrence: PH)
  Receive Date: 20160823
  Receipt Date: 20160823
  Transmission Date: 20161109
  Serious: Yes (Death, Hospitalization)
  Sender: FDA-Public Use
  Company Number: PH-SA-2016SA152896

PATIENT
  Age: 43 Year
  Sex: Female

DRUGS (5)
  1. ISONIAZID. [Suspect]
     Active Substance: ISONIAZID
     Route: 065
  2. DEXAMETHASONE SALT NOT SPECIFIED [Suspect]
     Active Substance: DEXAMETHASONE
     Route: 065
  3. PYRAZINAMIDE. [Suspect]
     Active Substance: PYRAZINAMIDE
     Route: 065
  4. ETHAMBUTOL [Suspect]
     Active Substance: ETHAMBUTOL HYDROCHLORIDE
     Route: 065
  5. RIFAMPICIN [Suspect]
     Active Substance: RIFAMPIN
     Route: 065

REACTIONS (8)
  - Condition aggravated [Fatal]
  - Drug ineffective [Unknown]
  - Meningitis tuberculous [Fatal]
  - Haemorrhagic infarction [Fatal]
  - Depressed level of consciousness [Fatal]
  - Decerebration [Fatal]
  - Basal ganglia haemorrhage [Fatal]
  - Pupils unequal [Fatal]
